FAERS Safety Report 25829661 (Version 1)
Quarter: 2025Q3

REPORT INFORMATION
  Report Type: Spontaneous
  Country: EU (occurrence: EU)
  Receive Date: 20250922
  Receipt Date: 20250922
  Transmission Date: 20251021
  Serious: Yes (Other)
  Sender: ROCHE
  Company Number: None

PATIENT
  Age: 70 Year
  Sex: Female
  Weight: 97 kg

DRUGS (4)
  1. PHESGO [Suspect]
     Active Substance: HYALURONIDASE-ZZXF\PERTUZUMAB\TRASTUZUMAB
     Indication: HER2 positive breast cancer
     Dosage: UNK UNK, Q3WK (600 MG PERTUZUMAB, 600 MG TRASTUZUMAB AND 20,000 UNITS HYALURONIDASE EVERY 21 DAYS)
     Route: 058
     Dates: start: 20230707
  2. XGEVA [Suspect]
     Active Substance: DENOSUMAB
     Indication: Metastases to bone
     Dosage: 120 MILLIGRAM, QMO (EVERY 28 DAYS)
     Route: 065
     Dates: start: 20221108, end: 202312
  3. TUCATINIB [Suspect]
     Active Substance: TUCATINIB
     Indication: HER2 positive breast cancer
     Dosage: UNK (CYCLIC (TWICE A DAY (BID) EVERY 21 DAYS)
     Route: 048
     Dates: start: 20230707
  4. ALPRAZOLAM [Concomitant]
     Active Substance: ALPRAZOLAM
     Indication: Anxiety
     Route: 065
     Dates: start: 2000

REACTIONS (1)
  - Osteonecrosis of jaw [Recovered/Resolved]

NARRATIVE: CASE EVENT DATE: 20240105
